FAERS Safety Report 20964352 (Version 7)
Quarter: 2022Q4

REPORT INFORMATION
  Report Type: Spontaneous
  Country: US (occurrence: US)
  Receive Date: 20220615
  Receipt Date: 20221003
  Transmission Date: 20230112
  Serious: Yes (Hospitalization, Other)
  Sender: FDA-Public Use
  Company Number: US-PFIZER INC-202200839250

PATIENT
  Age: 70 Year
  Sex: Male
  Weight: 94 kg

DRUGS (13)
  1. INLYTA [Suspect]
     Active Substance: AXITINIB
     Indication: Renal cancer
     Dosage: 5 MG, CYCLIC (PO BID X 4WEEKS Q 6 WEEKS)
     Route: 048
     Dates: start: 20220127
  2. INLYTA [Suspect]
     Active Substance: AXITINIB
     Indication: Renal cell carcinoma
     Dosage: 5 MG, 2X/DAY, FOR FOUR WEEKS EVERY 6 WEEKS
     Dates: start: 20220202
  3. INLYTA [Suspect]
     Active Substance: AXITINIB
     Dosage: 5 MG, CYCLIC (1 TABLET, TWICE DAILY FOR 4 WEEKS AND OFF 2 WEEKS AND REPEAT CYCLE)
     Route: 048
     Dates: start: 20220201
  4. INLYTA [Suspect]
     Active Substance: AXITINIB
     Dosage: 5 MG TABLET, ONE TABLET TWICE DAILY FOR 4 WEEKS OF EVERY 6 WEEKS
     Route: 048
     Dates: start: 20220913
  5. AMLODIPINE [Concomitant]
     Active Substance: AMLODIPINE BESYLATE
     Indication: Hypertension
     Dosage: 10 MG, 1X/DAY
     Route: 048
  6. ELIQUIS [Concomitant]
     Active Substance: APIXABAN
     Indication: Atrial fibrillation
     Dosage: 5 MG, 2X/DAY
     Route: 048
  7. ELIQUIS [Concomitant]
     Active Substance: APIXABAN
     Indication: Coagulopathy
  8. OLMESARTAN [Concomitant]
     Active Substance: OLMESARTAN
     Indication: Hypertension
     Dosage: 40 MG, DAILY
  9. OLMESARTAN [Concomitant]
     Active Substance: OLMESARTAN
     Dosage: 5 MG, DAILY
     Route: 048
  10. METFORMIN [Concomitant]
     Active Substance: METFORMIN HYDROCHLORIDE
     Indication: Diabetes mellitus
     Dosage: 500 MG, 2X/DAY
     Route: 048
  11. BASAGLAR [Concomitant]
     Active Substance: INSULIN GLARGINE
     Indication: Diabetes mellitus
     Dosage: INJECT 25 UNITS, EVERY EVENING
     Route: 058
  12. TRADJENTA [Concomitant]
     Active Substance: LINAGLIPTIN
     Indication: Diabetes mellitus
     Dosage: 5 MG, DAILY
     Route: 048
  13. NOVOLOG [Concomitant]
     Active Substance: INSULIN ASPART
     Dosage: FLEX PEN, INJECT 0 TO 15 UNITS FOUR TIMES DAILY PER SLIDING SCALE
     Route: 058

REACTIONS (6)
  - Diabetic complication [Not Recovered/Not Resolved]
  - Hypoglycaemia [Unknown]
  - Weight decreased [Recovering/Resolving]
  - Product dose omission issue [Unknown]
  - Product use issue [Unknown]
  - Off label use [Unknown]

NARRATIVE: CASE EVENT DATE: 20220101
